FAERS Safety Report 18800940 (Version 2)
Quarter: 2021Q1

REPORT INFORMATION
  Report Type: Report from Study
  Country: JP (occurrence: JP)
  Receive Date: 20210128
  Receipt Date: 20210209
  Transmission Date: 20210419
  Serious: Yes (Hospitalization, Other)
  Sender: FDA-Public Use
  Company Number: JP-BRISTOL-MYERS SQUIBB COMPANY-BMS-2021-001626

PATIENT
  Age: 74 Year
  Sex: Male
  Weight: 63 kg

DRUGS (19)
  1. OXALIPLATIN. [Concomitant]
     Active Substance: OXALIPLATIN
     Indication: GASTRIC CANCER
     Dosage: 130 MILLIGRAM/SQ. METER, Q3WK
     Route: 041
     Dates: start: 20201009
  2. SUINY [Concomitant]
     Active Substance: ANAGLIPTIN
     Indication: DIABETES MELLITUS
     Dosage: 100 MG, Q12H
     Route: 048
     Dates: start: 20200928, end: 20210119
  3. FLUMETHOLON [Concomitant]
     Active Substance: FLUOROMETHOLONE
     Indication: LACRIMATION INCREASED
     Dosage: APPROPRIATE AMOUNT, PRN
     Route: 047
  4. TRASTUZUMAB. [Concomitant]
     Active Substance: TRASTUZUMAB
     Dosage: 6 MILLIGRAM/KILOGRAM, Q3WK
     Route: 041
  5. XELODA [Concomitant]
     Active Substance: CAPECITABINE
     Indication: GASTRIC CANCER
     Dosage: 1800 MG, Q12H, 2 WEEKS ADMINISTRATION FOLLOWED BY 1 WEEK OF REST
     Route: 048
     Dates: start: 20201009, end: 20201023
  6. EMEND [Concomitant]
     Active Substance: APREPITANT
     Dosage: 125 MILLIGRAM
     Route: 048
     Dates: start: 20201029
  7. DEXART [Concomitant]
     Active Substance: DEXAMETHASONE SODIUM PHOSPHATE
     Indication: PROPHYLAXIS OF NAUSEA AND VOMITING
     Dosage: 6.6 MG, Q3W, OXALIPLATIN ADMINISTRATION DAY ONLY
     Route: 042
     Dates: start: 20201009
  8. MIYA?BM [Concomitant]
     Active Substance: CLOSTRIDIUM BUTYRICUM SPORES STRAIN M-55
     Indication: PROPHYLAXIS AGAINST DIARRHOEA
     Dosage: 1 GRAM, PRN
     Route: 048
     Dates: start: 20201023
  9. HEPARINOID [Concomitant]
     Active Substance: CHONDROITIN SULFATE (BOVINE)
     Indication: DRY SKIN PROPHYLAXIS
     Dosage: APPROPRIATE AMOUNT, PRN
     Route: 061
     Dates: start: 20201009
  10. XELODA [Concomitant]
     Active Substance: CAPECITABINE
     Dosage: 1200 MG, Q12H, 2 WEEKS ADMINISTRATION FOLLOWED BY 1 WEEK OF REST
     Route: 048
     Dates: start: 20201030, end: 20201229
  11. MYTEAR [BORIC ACID;POTASSIUM CHLORIDE;SODIUM BICARBONATE;SODIUM CHLORI [Concomitant]
     Indication: LACRIMATION INCREASED
     Dosage: APPROPRIATE AMOUNT, PRN
     Route: 047
  12. NIVOLUMAB [Suspect]
     Active Substance: NIVOLUMAB
     Indication: GASTRIC CANCER
     Dosage: 360 MILLIGRAM
     Route: 041
     Dates: start: 20201009, end: 20201225
  13. TRASTUZUMAB. [Concomitant]
     Active Substance: TRASTUZUMAB
     Indication: GASTRIC CANCER
     Dosage: 8 MILLIGRAM/KILOGRAM, Q3WK
     Route: 041
     Dates: start: 20201009
  14. EMEND [Concomitant]
     Active Substance: APREPITANT
     Indication: PROPHYLAXIS OF NAUSEA AND VOMITING
     Dosage: UNK
     Route: 048
     Dates: start: 20201009
  15. AMVALO [Concomitant]
     Active Substance: AMLODIPINE BESYLATE\VALSARTAN
     Indication: HYPERTENSION
     Dosage: 1 DF, EVERYDAY
     Route: 048
     Dates: start: 20200928
  16. EMEND [Concomitant]
     Active Substance: APREPITANT
     Dosage: 80 MG (D2,D3)
     Route: 048
     Dates: start: 20201030
  17. DECADRON [Concomitant]
     Active Substance: DEXAMETHASONE
     Indication: PROPHYLAXIS OF NAUSEA AND VOMITING
     Dosage: 4 MG (D2,D3)
     Route: 048
     Dates: start: 20201010
  18. PRIMPERAN [Concomitant]
     Active Substance: METOCLOPRAMIDE HYDROCHLORIDE
     Indication: NAUSEA
     Dosage: 5 MG, PRN
     Route: 048
     Dates: start: 20201016
  19. LOPENA [Concomitant]
     Indication: DIARRHOEA
     Dosage: 1 MG, PRN
     Route: 048
     Dates: start: 20201015

REACTIONS (2)
  - Type 1 diabetes mellitus [Recovering/Resolving]
  - Malaise [Recovered/Resolved]

NARRATIVE: CASE EVENT DATE: 20201230
